FAERS Safety Report 9856490 (Version 2)
Quarter: 2014Q1

REPORT INFORMATION
  Report Type: Spontaneous
  Country: GB (occurrence: GB)
  Receive Date: 20140130
  Receipt Date: 20140130
  Transmission Date: 20141002
  Serious: Yes (Other)
  Sender: FDA-Public Use
  Company Number: CHPA2014GB000648

PATIENT
  Age: 33 Year
  Sex: Male

DRUGS (16)
  1. SCOPODERM TTS [Suspect]
     Indication: SALIVARY HYPERSECRETION
     Dosage: 1 DF, Q72H
     Route: 062
     Dates: start: 201306, end: 201401
  2. SCOPODERM TTS [Suspect]
     Indication: OFF LABEL USE
  3. FENTANYL [Concomitant]
  4. GABAPENTIN [Concomitant]
  5. CELEBREX [Concomitant]
  6. TAMSULOSIN [Concomitant]
  7. DIAZEPAM [Concomitant]
  8. OMEPRAZOLE [Concomitant]
  9. RANITIDINE [Concomitant]
  10. PEPTAC [Concomitant]
  11. DIFFLAM [Concomitant]
  12. I LUBE [Concomitant]
  13. VISMED [Concomitant]
  14. PROPRANOLOL [Concomitant]
  15. METHYLCELLULOSE [Concomitant]
  16. LANSOPRAZOLE [Concomitant]

REACTIONS (16)
  - Confusional state [Recovering/Resolving]
  - Ocular discomfort [Recovering/Resolving]
  - Nausea [Recovering/Resolving]
  - Headache [Recovering/Resolving]
  - Balance disorder [Recovering/Resolving]
  - Fungal skin infection [Recovering/Resolving]
  - Rash [Recovering/Resolving]
  - Malaise [Recovering/Resolving]
  - Erythema [Recovering/Resolving]
  - Agitation [Recovering/Resolving]
  - Hyperhidrosis [Recovering/Resolving]
  - Fatigue [Recovering/Resolving]
  - Pruritus [Recovering/Resolving]
  - Skin burning sensation [Recovering/Resolving]
  - Dizziness [Unknown]
  - Wrong technique in drug usage process [Unknown]
